FAERS Safety Report 18907442 (Version 2)
Quarter: 2021Q1

REPORT INFORMATION
  Report Type: Report from Study
  Country: None (occurrence: NL)
  Receive Date: 20210217
  Receipt Date: 20210218
  Transmission Date: 20210420
  Serious: No
  Sender: FDA-Public Use
  Company Number: NL-ABBVIE-21K-114-3777913-00

PATIENT
  Sex: Male

DRUGS (6)
  1. CLOZAPINE. [Concomitant]
     Active Substance: CLOZAPINE
     Indication: HALLUCINATION
  2. DUODOPA [Suspect]
     Active Substance: CARBIDOPA\LEVODOPA
     Indication: PARKINSON^S DISEASE
     Dosage: MD: 7.0 ML, CD: 4.2 ML/H, ED: 3.5 ML, END: 3.5ML, CND: 2.2 ML/H
     Route: 050
  3. MACROGOL [Concomitant]
     Active Substance: POLYETHYLENE GLYCOLS
     Indication: ABNORMAL FAECES
  4. DUODOPA [Suspect]
     Active Substance: CARBIDOPA\LEVODOPA
     Dosage: END: 3,5 ML/H, CND: 2.2 ML
     Route: 050
  5. CLOZAPINE. [Concomitant]
     Active Substance: CLOZAPINE
     Indication: CONFUSIONAL STATE
  6. PARACETAMOL [Concomitant]
     Active Substance: ACETAMINOPHEN
     Indication: PRODUCT USED FOR UNKNOWN INDICATION

REACTIONS (3)
  - Device difficult to use [Unknown]
  - Gastric disorder [Unknown]
  - Device occlusion [Recovered/Resolved]
